FAERS Safety Report 9332818 (Version 1)
Quarter: 2013Q2

REPORT INFORMATION
  Report Type: Spontaneous
  Country: US (occurrence: US)
  Receive Date: 20130606
  Receipt Date: 20130606
  Transmission Date: 20140414
  Serious: Yes (Hospitalization)
  Sender: FDA-Public Use
  Company Number: US-PFIZER INC-2013167300

PATIENT
  Age: 86 Year
  Sex: Female
  Weight: 43.08 kg

DRUGS (4)
  1. DETROL LA [Suspect]
     Dosage: 2 MG, 1X/DAY
  2. DETROL LA [Suspect]
     Dosage: 2 MG, 2X/DAY
  3. CALTRATE [Concomitant]
     Indication: OSTEOPOROSIS
     Dosage: UNK, 2X/DAY
  4. CENTRUM SILVER [Concomitant]
     Dosage: UNK

REACTIONS (6)
  - Fall [Unknown]
  - Insomnia [Unknown]
  - Asthenia [Unknown]
  - Drug resistance [Unknown]
  - Pollakiuria [Unknown]
  - Drug ineffective [Unknown]
